FAERS Safety Report 24006975 (Version 1)
Quarter: 2024Q2

REPORT INFORMATION
  Report Type: Spontaneous
  Country: CN (occurrence: CN)
  Receive Date: 20240624
  Receipt Date: 20240624
  Transmission Date: 20240716
  Serious: Yes (Other)
  Sender: FDA-Public Use
  Company Number: CN-NAPPMUNDI-GBR-2024-0117448

PATIENT
  Age: 67 Year
  Sex: Female

DRUGS (2)
  1. OXYCODONE HYDROCHLORIDE [Suspect]
     Active Substance: OXYCODONE HYDROCHLORIDE
     Indication: Neoplasm malignant
     Dosage: 20 MILLIGRAM, BID
     Route: 048
     Dates: start: 20240520, end: 20240520
  2. PREGABALIN [Suspect]
     Active Substance: PREGABALIN
     Indication: Neoplasm malignant
     Dosage: 75 MILLIGRAM, BID
     Route: 048
     Dates: start: 20240520, end: 20240520

REACTIONS (3)
  - Somnolence [Recovered/Resolved with Sequelae]
  - Muscular weakness [Not Recovered/Not Resolved]
  - Dizziness [Recovered/Resolved]

NARRATIVE: CASE EVENT DATE: 20240520
